FAERS Safety Report 6645601-5 (Version None)
Quarter: 2010Q1

REPORT INFORMATION
  Report Type: 
  Country: None (occurrence: None)
  Receive Date: 20100319
  Receipt Date: 20100319
  Transmission Date: 20100710
  Serious: Yes (Hospitalization)
  Sender: FDA-Public Use
  Company Number: None

PATIENT
  Age: 32 Year
  Sex: Female

DRUGS (1)
  1. AVELOX [Suspect]
     Indication: OTITIS MEDIA
     Dosage: 400 MG DAILY PO
     Route: 048
     Dates: start: 20100123, end: 20100130

REACTIONS (3)
  - DYSPNOEA [None]
  - KERATITIS [None]
  - STEVENS-JOHNSON SYNDROME [None]
